FAERS Safety Report 23239699 (Version 1)
Quarter: 2023Q4

REPORT INFORMATION
  Report Type: Spontaneous
  Country: US (occurrence: US)
  Receive Date: 20231129
  Receipt Date: 20231129
  Transmission Date: 20240110
  Serious: No
  Sender: FDA-Public Use
  Company Number: US-MICRO LABS LIMITED-ML2023-06678

PATIENT
  Sex: Female

DRUGS (3)
  1. KETOROLAC [Suspect]
     Active Substance: KETOROLAC TROMETHAMINE
     Indication: Eye irritation
     Dosage: DOSE: ONE DROP IN ONE EYE (LEFT EYE)
     Route: 047
     Dates: start: 20231004
  2. KETOROLAC [Suspect]
     Active Substance: KETOROLAC TROMETHAMINE
     Indication: Eye inflammation
  3. KETOROLAC [Suspect]
     Active Substance: KETOROLAC TROMETHAMINE
     Indication: Eye swelling

REACTIONS (3)
  - Eye irritation [Unknown]
  - Eye pain [Unknown]
  - Product container issue [Unknown]
